FAERS Safety Report 11619569 (Version 3)
Quarter: 2016Q2

REPORT INFORMATION
  Report Type: Report from Study
  Country: JP (occurrence: JP)
  Receive Date: 20151012
  Receipt Date: 20160615
  Transmission Date: 20160815
  Serious: Yes (Hospitalization)
  Sender: FDA-Public Use
  Company Number: JP-BEH-2015054584

PATIENT
  Age: 34 Year
  Sex: Male
  Weight: 79 kg

DRUGS (13)
  1. REBAMIPIDE [Concomitant]
     Active Substance: REBAMIPIDE
     Indication: CHRONIC GASTRITIS
     Route: 048
     Dates: start: 20150420
  2. CARBOCISTEINE [Concomitant]
     Active Substance: CARBOCYSTEINE
     Indication: BRONCHITIS CHRONIC
     Route: 048
     Dates: start: 20150501
  3. PRIVIGEN [Suspect]
     Active Substance: HUMAN IMMUNOGLOBULIN G
     Indication: CHRONIC INFLAMMATORY DEMYELINATING POLYRADICULONEUROPATHY
     Dosage: WEEK 1 DAY 1; INITIAL INFUSION RATE: 20 ML/H; MAXIMUM INFUSION RATE: 100 ML/H
     Route: 042
     Dates: start: 20150806, end: 20150806
  4. PRIVIGEN [Suspect]
     Active Substance: HUMAN IMMUNOGLOBULIN G
     Dosage: WEEK 1 DAY 2; INITIAL INFUSION RATE: 100 ML/H; MAXIMUM INFUSION RATE: 100 ML/H
     Route: 042
     Dates: start: 20150807, end: 20150807
  5. PRIVIGEN [Suspect]
     Active Substance: HUMAN IMMUNOGLOBULIN G
     Dosage: WEEK 1 DAY 4; INITIAL INFUSION RATE: 100 ML/H; MAXIMUM INFUSION RATE: 100 ML/H
     Route: 042
     Dates: start: 20150809, end: 20150809
  6. ANTEBETE OINTMENT 0.05% [Concomitant]
     Indication: ECZEMA
     Route: 061
     Dates: start: 20150508
  7. PRIVIGEN [Suspect]
     Active Substance: HUMAN IMMUNOGLOBULIN G
     Dosage: WEEK 4; INITIAL INFUSION RATE: 90 ML/H; MAXIMUM INFUSION RATE: 200 ML/H
     Route: 042
     Dates: start: 20150827, end: 20150827
  8. MAGNESIUM OXIDE. [Concomitant]
     Active Substance: MAGNESIUM OXIDE
     Indication: CONSTIPATION
     Route: 048
     Dates: start: 20150417
  9. PRIVIGEN [Suspect]
     Active Substance: HUMAN IMMUNOGLOBULIN G
     Dosage: WEEK 1 DAY 3; INITIAL INFUSION RATE: 100 ML/H; MAXIMUM INFUSION RATE: 100 ML/H
     Route: 042
     Dates: start: 20150808, end: 20150808
  10. PRIVIGEN [Suspect]
     Active Substance: HUMAN IMMUNOGLOBULIN G
     Dosage: WEEK 1 DAY 5; INITIAL INFUSION RATE: 100 ML/H; MAXIMUM INFUSION RATE: 100 ML/H
     Route: 042
     Dates: start: 20150810, end: 20150810
  11. PRIVIGEN [Suspect]
     Active Substance: HUMAN IMMUNOGLOBULIN G
     Dosage: WEEK 5; INITIAL INFUSION RATE: 100 ML/H; MAXIMUM INFUSION RATE: 200 ML/H
     Route: 042
     Dates: start: 20150915, end: 20150915
  12. LOXOPROFEN [Concomitant]
     Active Substance: LOXOPROFEN
     Indication: HEADACHE
     Route: 048
     Dates: start: 20150420
  13. OLOPATADINE HYDROCHLORIDE. [Concomitant]
     Active Substance: OLOPATADINE HYDROCHLORIDE
     Indication: PROPHYLAXIS
     Route: 047
     Dates: start: 20150507

REACTIONS (1)
  - Chronic inflammatory demyelinating polyradiculoneuropathy [Recovered/Resolved]

NARRATIVE: CASE EVENT DATE: 20150911
